FAERS Safety Report 6726830-9 (Version None)
Quarter: 2010Q2

REPORT INFORMATION
  Report Type: 
  Country: None (occurrence: None)
  Receive Date: 20100516
  Receipt Date: 20100512
  Transmission Date: 20101027
  Serious: Yes (Life-Threatening, Other)
  Sender: FDA-Public Use
  Company Number: JP-JNJFOC-20100502009

PATIENT
  Sex: Female
  Weight: 35 kg

DRUGS (12)
  1. RISPERDAL [Suspect]
     Indication: DELIRIUM
     Route: 048
  2. TIAPRIDE HYDROCHLORIDE [Suspect]
     Indication: DELIRIUM
     Route: 048
  3. TIAPRIDE HYDROCHLORIDE [Suspect]
     Route: 048
  4. SUNRYTHM [Concomitant]
     Indication: ATRIAL FIBRILLATION
     Route: 048
  5. PARIET [Concomitant]
     Indication: GASTRIC ULCER
     Route: 048
  6. CRESTOR [Concomitant]
     Indication: HYPERLIPIDAEMIA
     Route: 048
  7. DIART [Concomitant]
     Indication: HYPERTENSION
     Route: 048
  8. STAYBLA [Concomitant]
     Indication: POLLAKIURIA
     Route: 048
  9. DEPAS [Concomitant]
     Indication: ANXIETY
     Route: 048
  10. KETAS [Concomitant]
     Indication: HYPERSENSITIVITY
     Route: 048
  11. NORVASC [Concomitant]
     Indication: HYPERTENSION
     Route: 048
  12. SALOBEL [Concomitant]
     Indication: GOUT
     Route: 048

REACTIONS (6)
  - AKINESIA [None]
  - ALTERED STATE OF CONSCIOUSNESS [None]
  - JOINT ANKYLOSIS [None]
  - NEUROLEPTIC MALIGNANT SYNDROME [None]
  - OFF LABEL USE [None]
  - SOMNOLENCE [None]
